FAERS Safety Report 5759759-3 (Version None)
Quarter: 2008Q2

REPORT INFORMATION
  Report Type: 
  Country: None (occurrence: None)
  Receive Date: 20080605
  Receipt Date: 20080527
  Transmission Date: 20081010
  Serious: Yes (Other)
  Sender: FDA-Public Use
  Company Number: A0731535A

PATIENT
  Sex: Female

DRUGS (2)
  1. VERAMYST [Suspect]
     Indication: POLYP
     Route: 045
  2. UNKNOWN [Concomitant]

REACTIONS (8)
  - BLINDNESS [None]
  - BLOOD GLUCOSE DECREASED [None]
  - DEPRESSION [None]
  - HAIR GROWTH ABNORMAL [None]
  - IMPAIRED HEALING [None]
  - INFECTION [None]
  - WEIGHT INCREASED [None]
  - WHITE BLOOD CELL COUNT DECREASED [None]
